FAERS Safety Report 4580192-4 (Version None)
Quarter: 2005Q1

REPORT INFORMATION
  Report Type: 
  Country: None (occurrence: None)
  Receive Date: 20050127
  Receipt Date: 20040928
  Transmission Date: 20050727
  Serious: No
  Sender: FDA-Public Use
  Company Number: USA040979595

PATIENT
  Age: 12 Year
  Sex: Male
  Weight: 28 kg

DRUGS (5)
  1. STRATTERA [Suspect]
     Indication: ATTENTION DEFICIT/HYPERACTIVITY DISORDER
     Dosage: 40 MG DAY
     Dates: start: 20040924
  2. ZYRTEC [Concomitant]
  3. DAYQUIL [Concomitant]
  4. ALBUTEROL [Concomitant]
  5. SINGULAIR (MONTELUKAST) [Concomitant]

REACTIONS (5)
  - COUGH [None]
  - FATIGUE [None]
  - FEELING ABNORMAL [None]
  - NASAL CONGESTION [None]
  - SOMNOLENCE [None]
